FAERS Safety Report 6926227-2 (Version None)
Quarter: 2010Q3

REPORT INFORMATION
  Report Type: 
  Country: None (occurrence: None)
  Receive Date: 20100816
  Receipt Date: 20100806
  Transmission Date: 20110219
  Serious: Yes (Hospitalization, Other)
  Sender: FDA-Public Use
  Company Number: HQWYE192316JUL04

PATIENT
  Sex: Female
  Weight: 65.83 kg

DRUGS (5)
  1. PREMPRO [Suspect]
     Indication: HORMONE REPLACEMENT THERAPY
     Dosage: 0.625MG, FREQUENCY UNSPECIFIED
     Dates: start: 20000712, end: 20020203
  2. PREMARIN [Suspect]
     Indication: VULVOVAGINAL DRYNESS
     Dosage: UNSPECIFIED
     Dates: start: 20000917, end: 20010724
  3. CYCRIN [Suspect]
  4. PREMARIN [Suspect]
     Indication: HORMONE REPLACEMENT THERAPY
     Dosage: 0.625MG, FREQUENCY UNSPECIFIED
     Dates: start: 19961125, end: 19970725
  5. PROVERA [Suspect]
     Indication: HORMONE REPLACEMENT THERAPY
     Dosage: 2.5MG, FREQUENCY UNSPECIFIED
     Dates: start: 19971119, end: 19990104

REACTIONS (2)
  - ANXIETY [None]
  - BREAST CANCER METASTATIC [None]
